FAERS Safety Report 5711373-1 (Version None)
Quarter: 2008Q2

REPORT INFORMATION
  Report Type: 
  Country: None (occurrence: None)
  Receive Date: 20080421
  Receipt Date: 20080418
  Transmission Date: 20081010
  Serious: Yes (Other)
  Sender: FDA-Public Use
  Company Number: B0517440A

PATIENT
  Age: 61 Year
  Sex: Male

DRUGS (2)
  1. AVANDAMET [Suspect]
     Dosage: 500MG TWICE PER DAY
     Route: 048
     Dates: start: 20080128
  2. VALPROATE SODIUM [Suspect]
     Indication: EPILEPSY
     Route: 065
     Dates: start: 20070401

REACTIONS (3)
  - CONVULSION [None]
  - DRUG INTERACTION [None]
  - NEUTROPHIL COUNT DECREASED [None]
